FAERS Safety Report 4574203-X (Version None)
Quarter: 2005Q1

REPORT INFORMATION
  Report Type: 
  Country: None (occurrence: None)
  Receive Date: 20050208
  Receipt Date: 20040723
  Transmission Date: 20050727
  Serious: Yes (Death, Life-Threatening, Hospitalization)
  Sender: FDA-Public Use
  Company Number: 200415587US

PATIENT
  Sex: Female
  Weight: 204.5 kg

DRUGS (35)
  1. LOVENOX [Suspect]
     Indication: DISSEMINATED INTRAVASCULAR COAGULATION
     Route: 058
     Dates: start: 20031025, end: 20031103
  2. ANALGESICS [Concomitant]
     Dosage: DOSE: UNK
  3. SKELAXIN [Concomitant]
     Indication: MYALGIA
     Route: 048
  4. VISTARIL [Concomitant]
     Indication: VOMITING
     Dosage: DOSE: 25/50
     Route: 048
     Dates: start: 20030101
  5. ROCEPHIN [Concomitant]
     Route: 048
  6. NYSTATIN [Concomitant]
     Indication: RASH
     Dosage: DOSE: UNK
     Route: 051
  7. FERROUS SULFATE TAB [Concomitant]
     Route: 048
     Dates: start: 20031010
  8. DIFLUCAN [Concomitant]
     Indication: FUNGAL INFECTION
     Dosage: DOSE: UNK
     Dates: start: 20041027, end: 20041031
  9. SYNERCID [Concomitant]
     Dosage: DOSE: UNK
  10. MORPHINE [Concomitant]
     Dosage: DOSE: UNK
  11. HYDROCODONE [Concomitant]
     Dosage: DOSE: 5/500
     Route: 048
     Dates: start: 20031007, end: 20031021
  12. SLOW-FE [Concomitant]
     Indication: IRON DEFICIENCY ANAEMIA
     Route: 048
     Dates: start: 20020801, end: 20031102
  13. PROVERA [Concomitant]
     Indication: METRORRHAGIA
     Route: 048
     Dates: start: 20030903, end: 20031003
  14. ZOLOFT [Concomitant]
     Indication: DEPRESSION
     Route: 048
     Dates: end: 20030801
  15. LASIX [Concomitant]
     Indication: FLUID RETENTION
     Route: 048
     Dates: end: 20030801
  16. TEQUIN [Concomitant]
     Route: 048
     Dates: start: 20031007, end: 20031024
  17. VICODIN [Concomitant]
     Dosage: DOSE: UNK
     Route: 048
  18. NUBAIN [Concomitant]
     Indication: PAIN
     Route: 042
  19. PEPCID [Concomitant]
     Route: 048
     Dates: start: 20031007
  20. AMBIEN [Concomitant]
     Indication: INSOMNIA
     Route: 048
     Dates: start: 20031007, end: 20031021
  21. KEFLEX [Concomitant]
     Route: 048
  22. LORCET-HD [Concomitant]
     Dosage: DOSE: UNK
     Route: 048
  23. BACTROBAN [Concomitant]
     Dosage: DOSE: UNK
     Route: 061
  24. PHENTERMINE [Concomitant]
  25. LOTRISONE [Concomitant]
     Dosage: DOSE: UNK
  26. MUSCLE RELAXANTS [Concomitant]
     Dosage: DOSE: UNK
  27. DOCUSATE SODIUM [Concomitant]
     Route: 048
     Dates: start: 20031011
  28. CLINDAMYCIN [Concomitant]
     Route: 048
     Dates: start: 20031014, end: 20031028
  29. ZOSYN [Concomitant]
     Route: 042
     Dates: start: 20031015, end: 20031022
  30. NALBUPHINE [Concomitant]
     Indication: PAIN
     Dosage: DOSE: 5/0.5; DOSE UNIT: MILLIGRAM PER MILLILITRE
     Route: 042
     Dates: start: 20031007, end: 20031021
  31. TYLENOL [Concomitant]
     Indication: BODY TEMPERATURE
     Route: 048
     Dates: start: 20031007
  32. PROMETHAZINE [Concomitant]
     Indication: VOMITING
     Route: 042
     Dates: start: 20031008
  33. MAALOX PLUS [Concomitant]
     Indication: DYSPEPSIA
     Route: 048
     Dates: start: 20031008
  34. HYDROXYZINE [Concomitant]
     Indication: VOMITING
     Route: 048
     Dates: start: 20031013
  35. VITAMIN K1 [Concomitant]
     Route: 058
     Dates: start: 20041011, end: 20041013

REACTIONS (20)
  - CARDIO-RESPIRATORY ARREST [None]
  - CONFUSIONAL STATE [None]
  - CULTURE URINE POSITIVE [None]
  - CULTURE WOUND POSITIVE [None]
  - DISSEMINATED INTRAVASCULAR COAGULATION [None]
  - ELECTROCARDIOGRAM ABNORMAL [None]
  - FIBRINOLYSIS INCREASED [None]
  - HYPOXIA [None]
  - INFESTATION [None]
  - LEUKOCYTOSIS [None]
  - METASTATIC NEOPLASM [None]
  - NAUSEA [None]
  - PLATELET COUNT DECREASED [None]
  - PNEUMONIA [None]
  - PYREXIA [None]
  - SINUS TACHYCARDIA [None]
  - SUPRAVENTRICULAR EXTRASYSTOLES [None]
  - THROMBOCYTOPENIA [None]
  - VENTRICULAR EXTRASYSTOLES [None]
  - VOMITING [None]
